FAERS Safety Report 7512233-6 (Version None)
Quarter: 2011Q2

REPORT INFORMATION
  Report Type: 
  Country: None (occurrence: None)
  Receive Date: 20110531
  Receipt Date: 20101209
  Transmission Date: 20111010
  Serious: No
  Sender: FDA-Public Use
  Company Number: US-BAYER-201034542NA

PATIENT
  Age: 22 Year
  Sex: Female

DRUGS (2)
  1. MIRENA [Suspect]
     Route: 015
     Dates: start: 20080101
  2. PARAGARD T 380A [Suspect]
     Dosage: UNK
     Dates: start: 20080929

REACTIONS (3)
  - DYSPEPSIA [None]
  - PREGNANCY [None]
  - ABDOMINAL DISCOMFORT [None]
